FAERS Safety Report 4666419-9 (Version None)
Quarter: 2005Q2

REPORT INFORMATION
  Report Type: 
  Country: None (occurrence: None)
  Receive Date: 20050518
  Receipt Date: 20050503
  Transmission Date: 20051028
  Serious: Yes (Hospitalization)
  Sender: FDA-Public Use
  Company Number: 203623

PATIENT
  Age: 42 Year
  Sex: Female

DRUGS (8)
  1. AVONEX [Suspect]
     Indication: MULTIPLE SCLEROSIS
     Dosage: 30 UG; QW; IM
     Route: 030
     Dates: start: 20000901, end: 20030825
  2. AVONEX [Suspect]
     Indication: MULTIPLE SCLEROSIS
     Dosage: 30 UG; QW; IM
     Route: 030
  3. AZITHROMYCIN [Concomitant]
  4. TEGASEROD [Concomitant]
  5. XANAX [Concomitant]
  6. PROZAC [Concomitant]
  7. PROGESTERONE [Concomitant]
  8. BETASERON [Concomitant]

REACTIONS (9)
  - ABDOMINAL TENDERNESS [None]
  - COLITIS ISCHAEMIC [None]
  - DIVERTICULUM [None]
  - GASTROINTESTINAL HAEMORRHAGE [None]
  - HAEMORRHOIDS [None]
  - HEADACHE [None]
  - IRRITABLE BOWEL SYNDROME [None]
  - PHARYNGITIS STREPTOCOCCAL [None]
  - SENSATION OF HEAVINESS [None]
